FAERS Safety Report 4721407-9 (Version None)
Quarter: 2005Q3

REPORT INFORMATION
  Report Type: 
  Country: None (occurrence: None)
  Receive Date: 20050721
  Receipt Date: 20040811
  Transmission Date: 20060218
  Serious: No
  Sender: FDA-Public Use
  Company Number: US-BRISTOL-MYERS SQUIBB COMPANY-12668042

PATIENT
  Age: 82 Year
  Sex: Female
  Weight: 59 kg

DRUGS (9)
  1. COUMADIN [Suspect]
     Indication: BLOOD VISCOSITY INCREASED
     Dosage: 2.5MG DAILY FOR SIX DAYS AND 5MG FOR ONE DAY
     Route: 048
  2. COUMADIN [Suspect]
     Indication: PALPITATIONS
     Dosage: 2.5MG DAILY FOR SIX DAYS AND 5MG FOR ONE DAY
     Route: 048
  3. LIPITOR [Concomitant]
  4. ATENOLOL [Concomitant]
  5. LOPID [Concomitant]
  6. PROCARDIA XL [Concomitant]
  7. CALCIUM GLUCONATE [Concomitant]
  8. TYLENOL [Concomitant]
  9. FISH OIL [Concomitant]

REACTIONS (2)
  - CONTUSION [None]
  - INTERNATIONAL NORMALISED RATIO FLUCTUATION [None]
